FAERS Safety Report 8974882 (Version 1)
Quarter: 2012Q4

REPORT INFORMATION
  Report Type: 
  Country: CH (occurrence: CH)
  Receive Date: 20121219
  Receipt Date: 20121219
  Transmission Date: 20130627
  Serious: Yes (Death, Hospitalization, Other)
  Sender: FDA-Public Use
  Company Number: CH-BAXTER-2012BAX027182

PATIENT
  Age: 82 Year
  Sex: Female

DRUGS (13)
  1. ENDOXAN [Suspect]
     Indication: DRUG USE FOR UNKNOWN INDICATION
     Route: 065
     Dates: start: 2007, end: 200805
  2. PREDNISONE [Suspect]
     Indication: DRUG USE FOR UNKNOWN INDICATION
     Route: 065
  3. MABTHERA [Suspect]
     Indication: DRUG USE FOR UNKNOWN INDICATION
     Route: 065
     Dates: start: 20080305, end: 20080402
  4. MABTHERA [Suspect]
     Route: 065
     Dates: start: 20080315
  5. MABTHERA [Suspect]
     Route: 065
     Dates: start: 20080325
  6. MABTHERA [Suspect]
     Route: 065
     Dates: start: 20080402
  7. TOREM [Concomitant]
     Indication: DRUG USE FOR UNKNOWN INDICATION
     Route: 065
  8. BELOC-ZOC [Concomitant]
     Indication: DRUG USE FOR UNKNOWN INDICATION
     Route: 065
  9. ADALAT [Concomitant]
     Indication: DRUG USE FOR UNKNOWN INDICATION
     Route: 065
  10. ASPIRIN CARDIO [Concomitant]
     Indication: DRUG USE FOR UNKNOWN INDICATION
     Route: 065
  11. SORTIS [Concomitant]
     Indication: DRUG USE FOR UNKNOWN INDICATION
     Route: 065
  12. NEXIUM [Concomitant]
     Indication: DRUG USE FOR UNKNOWN INDICATION
     Route: 065
  13. BACTRIM [Concomitant]
     Indication: DRUG USE FOR UNKNOWN INDICATION
     Route: 065

REACTIONS (7)
  - Enterococcal sepsis [Fatal]
  - Pulmonary embolism [Fatal]
  - Cellulitis [Recovered/Resolved]
  - Femur fracture [Unknown]
  - Cardiac failure [Unknown]
  - Large intestine perforation [Unknown]
  - Renal failure acute [Unknown]
